FAERS Safety Report 6449960-8 (Version None)
Quarter: 2009Q4

REPORT INFORMATION
  Report Type: 
  Country: None (occurrence: None)
  Receive Date: 20091120
  Receipt Date: 20091120
  Transmission Date: 20100525
  Serious: Yes (Hospitalization)
  Sender: FDA-Public Use
  Company Number: None

PATIENT
  Sex: Male
  Weight: 79.7 kg

DRUGS (10)
  1. AZACITIDINE [Suspect]
     Indication: ACUTE MYELOID LEUKAEMIA
     Dosage: 75 MG/M2 QD S/C
     Route: 058
     Dates: start: 20091104, end: 20091110
  2. LENALIDOMIDE [Suspect]
     Dosage: 10 MG QD PO
     Route: 048
     Dates: start: 20091111
  3. DUCOSATE (COLACE) [Concomitant]
  4. ZYLOPRIM [Concomitant]
  5. METOPROLOL (LOPRESSOR) [Concomitant]
  6. IMDUR [Concomitant]
  7. PROSCAR [Concomitant]
  8. DESYREL [Concomitant]
  9. CRESTOR [Concomitant]
  10. AMINOCAPROIC [Concomitant]

REACTIONS (8)
  - CATHETER SITE HAEMORRHAGE [None]
  - CONSTIPATION [None]
  - DIARRHOEA [None]
  - EPISTAXIS [None]
  - FEBRILE NEUTROPENIA [None]
  - HAEMORRHOIDAL HAEMORRHAGE [None]
  - RASH ERYTHEMATOUS [None]
  - RASH PRURITIC [None]
